FAERS Safety Report 7955010-4 (Version None)
Quarter: 2011Q4

REPORT INFORMATION
  Report Type: 
  Country: None (occurrence: None)
  Receive Date: 20111202
  Receipt Date: 20111129
  Transmission Date: 20120403
  Serious: Yes (Death, Other)
  Sender: FDA-Public Use
  Company Number: PHHY2011DE104483

PATIENT
  Age: 55 Year
  Sex: Male

DRUGS (5)
  1. MELPERONE [Suspect]
     Dosage: 150 MG, QD
  2. ZUCLOPENTHIXOL ACETATE [Suspect]
     Dosage: 100 MG; SINGLE DOSE
  3. DULOXETINE HYDROCHLORIDE [Suspect]
     Dosage: 120 MG, QD
  4. AMITRIPTYLINE HCL [Suspect]
     Dosage: 200 MG, QD
  5. INDOMETHACIN [Suspect]

REACTIONS (4)
  - LOSS OF CONSCIOUSNESS [None]
  - HYPONATRAEMIA [None]
  - CARDIO-RESPIRATORY ARREST [None]
  - WATER INTOXICATION [None]
